FAERS Safety Report 21351758 (Version 1)
Quarter: 2022Q3

REPORT INFORMATION
  Report Type: Report from Study
  Country: IL (occurrence: IL)
  Receive Date: 20220919
  Receipt Date: 20220919
  Transmission Date: 20221027
  Serious: Yes (Hospitalization, Other)
  Sender: FDA-Public Use
  Company Number: IL-BRISTOL-MYERS SQUIBB COMPANY-2022-105433

PATIENT
  Age: 63 Year
  Sex: Female
  Weight: 59.00 kg

DRUGS (2)
  1. LENALIDOMIDE [Suspect]
     Active Substance: LENALIDOMIDE
     Indication: Splenic marginal zone lymphoma
     Dosage: (DAYS 1 TO 21 OF  EVERY CYCLE FOR 12 CYCLES);
     Route: 048
     Dates: start: 20220613, end: 20220827
  2. RITUXIMAB [Suspect]
     Active Substance: RITUXIMAB
     Indication: Splenic marginal zone lymphoma
     Dosage: 375 MG/M2 (630 MG) (DAYS 1, 8, 15, 22 OF CYCLE 1 AND DAY 1 OF CYCLES 2 TO 5)
     Route: 042
     Dates: start: 20220614, end: 20220808

REACTIONS (2)
  - Febrile neutropenia [Recovered/Resolved]
  - Breast abscess [Not Recovered/Not Resolved]

NARRATIVE: CASE EVENT DATE: 20220829
